FAERS Safety Report 5933389-2 (Version None)
Quarter: 2008Q4

REPORT INFORMATION
  Report Type: 
  Country: None (occurrence: None)
  Receive Date: 20081023
  Receipt Date: 20081016
  Transmission Date: 20090506
  Serious: Yes (Hospitalization)
  Sender: FDA-Public Use
  Company Number: 20080297

PATIENT
  Age: 69 Year
  Sex: Female

DRUGS (3)
  1. CALCIUM GLUCONATE [Suspect]
     Indication: IMMUNE SYSTEM DISORDER
     Dosage: 20 ML ONCE INTRAVENOUS
     Route: 042
     Dates: start: 20080924
  2. VITAMIN INFUSION IN STERILE WATER [Concomitant]
  3. MAGNESIUM SULFATE [Concomitant]

REACTIONS (9)
  - AGGRESSION [None]
  - DIARRHOEA [None]
  - DIZZINESS [None]
  - INFLUENZA LIKE ILLNESS [None]
  - LEUKOCYTOSIS [None]
  - MUSCLE SPASMS [None]
  - OFF LABEL USE [None]
  - THROMBOCYTOPENIA [None]
  - VIRAL INFECTION [None]
